FAERS Safety Report 8165569-2 (Version None)
Quarter: 2012Q1

REPORT INFORMATION
  Report Type: 
  Country: None (occurrence: None)
  Receive Date: 20120223
  Receipt Date: 20120223
  Transmission Date: 20120608
  Serious: Yes (Life-Threatening)
  Sender: FDA-Public Use
  Company Number: None

PATIENT
  Sex: Male
  Weight: 72.5755 kg

DRUGS (1)
  1. PRADAXA [Suspect]
     Indication: ATRIAL FIBRILLATION
     Dosage: 150 MG EVERY 12 HRS. ORAL
     Route: 048
     Dates: start: 20120130, end: 20120204

REACTIONS (7)
  - ABDOMINAL DISCOMFORT [None]
  - ANORECTAL DISCOMFORT [None]
  - MICTURITION URGENCY [None]
  - ABDOMINAL PAIN LOWER [None]
  - HAEMATURIA [None]
  - URINARY TRACT PAIN [None]
  - URINE ABNORMALITY [None]
